FAERS Safety Report 8261115-3 (Version None)
Quarter: 2012Q2

REPORT INFORMATION
  Report Type: 
  Country: None (occurrence: None)
  Receive Date: 20120405
  Receipt Date: 20120402
  Transmission Date: 20120825
  Serious: Yes (Death, Hospitalization, Other)
  Sender: FDA-Public Use
  Company Number: PHHY2009US66452

PATIENT
  Sex: Male

DRUGS (3)
  1. EXJADE [Suspect]
     Indication: IRON OVERLOAD
     Dosage: 500 MG, QD
     Route: 048
  2. GOLYTELY [Concomitant]
     Dosage: 400 CM3, UNK
  3. EXJADE [Suspect]
     Dosage: 500 MG, QD
     Route: 048

REACTIONS (10)
  - VOMITING [None]
  - FATIGUE [None]
  - INTESTINAL DILATATION [None]
  - ABDOMINAL DISCOMFORT [None]
  - DIZZINESS [None]
  - DIARRHOEA [None]
  - PELVIC ABSCESS [None]
  - NAUSEA [None]
  - DEATH [None]
  - BLOOD CREATINE INCREASED [None]
